FAERS Safety Report 6938688-3 (Version None)
Quarter: 2010Q3

REPORT INFORMATION
  Report Type: 
  Country: None (occurrence: None)
  Receive Date: 20100824
  Receipt Date: 20100813
  Transmission Date: 20110219
  Serious: Yes (Hospitalization)
  Sender: FDA-Public Use
  Company Number: PHHY2010FR53993

PATIENT
  Sex: Female

DRUGS (8)
  1. VOLTAREN [Suspect]
     Dosage: 75 MG, BID
     Route: 048
     Dates: start: 20100201, end: 20100705
  2. VASTAREL [Concomitant]
  3. ISOPTIN [Concomitant]
  4. COOLMETEC [Concomitant]
  5. ALLOPURINOL [Concomitant]
  6. CARDEGIC [Concomitant]
  7. CHONDROSULF [Concomitant]
  8. TRAMADOL HCL [Concomitant]

REACTIONS (6)
  - ANAEMIA [None]
  - DUODENITIS [None]
  - GASTRIC ULCER [None]
  - GENERAL PHYSICAL HEALTH DETERIORATION [None]
  - RENAL FAILURE ACUTE [None]
  - VARICES OESOPHAGEAL [None]
